FAERS Safety Report 25267006 (Version 1)
Quarter: 2025Q2

REPORT INFORMATION
  Report Type: Report from Study
  Country: IN (occurrence: IN)
  Receive Date: 20250505
  Receipt Date: 20250505
  Transmission Date: 20250716
  Serious: Yes (Other)
  Sender: ROCHE
  Company Number: IN-002147023-NVSC2025IN069669

PATIENT
  Sex: Male

DRUGS (1)
  1. RANIBIZUMAB [Suspect]
     Active Substance: RANIBIZUMAB
     Indication: Diabetic retinopathy
     Route: 050
     Dates: start: 20230715

REACTIONS (5)
  - Glaucoma [Unknown]
  - Blindness unilateral [Unknown]
  - Visual impairment [Unknown]
  - Iris neovascularisation [Unknown]
  - Heterophoria [Unknown]
